FAERS Safety Report 20452036 (Version 1)
Quarter: 2022Q1

REPORT INFORMATION
  Report Type: Spontaneous
  Country: FR (occurrence: FR)
  Receive Date: 20220209
  Receipt Date: 20220209
  Transmission Date: 20220423
  Serious: Yes (Congenital Anomaly, Other)
  Sender: FDA-Public Use
  Company Number: FR-ABBVIE-22K-056-4270508-00

PATIENT
  Sex: Male

DRUGS (2)
  1. VALPROATE SODIUM [Suspect]
     Active Substance: VALPROATE SODIUM
     Indication: Maternal exposure timing unspecified
     Route: 064
  2. VALPROATE SODIUM [Suspect]
     Active Substance: VALPROATE SODIUM
     Indication: Maternal exposure timing unspecified
     Route: 064

REACTIONS (20)
  - Congenital tongue anomaly [Unknown]
  - Dysphagia [Unknown]
  - Spine malformation [Unknown]
  - Congenital claw toe [Unknown]
  - Clinodactyly [Unknown]
  - Otitis media [Unknown]
  - Nausea [Unknown]
  - Vomiting [Unknown]
  - Kidney malformation [Unknown]
  - Diarrhoea [Unknown]
  - Regurgitation [Unknown]
  - Pneumonitis [Unknown]
  - Speech disorder [Unknown]
  - Communication disorder [Unknown]
  - Growth disorder [Unknown]
  - Hemivertebra [Unknown]
  - Torticollis [Unknown]
  - Language disorder [Unknown]
  - Areflexia [Unknown]
  - Foetal exposure during pregnancy [Unknown]
